FAERS Safety Report 13867076 (Version 1)
Quarter: 2017Q3

REPORT INFORMATION
  Report Type: Spontaneous
  Country: HR (occurrence: HR)
  Receive Date: 20170814
  Receipt Date: 20170814
  Transmission Date: 20171127
  Serious: Yes (Other)
  Sender: FDA-Public Use
  Company Number: HR-TEVA-793745ACC

PATIENT
  Age: 17 Year
  Sex: Female

DRUGS (2)
  1. TINDIL (ISOSORBIDE DINITRATE) [Suspect]
     Active Substance: ISOSORBIDE DINITRATE
     Route: 048
     Dates: start: 20170112
  2. MISAR (ALPRAZOLAM) [Suspect]
     Active Substance: ALPRAZOLAM
     Route: 048
     Dates: start: 20170112

REACTIONS (3)
  - Intentional overdose [Unknown]
  - Suicide attempt [Unknown]
  - Somnolence [Unknown]

NARRATIVE: CASE EVENT DATE: 20170112
